FAERS Safety Report 19073203 (Version 4)
Quarter: 2021Q2

REPORT INFORMATION
  Report Type: Report from Study
  Country: ES (occurrence: ES)
  Receive Date: 20210330
  Receipt Date: 20210629
  Transmission Date: 20210717
  Serious: Yes (Death, Hospitalization)
  Sender: FDA-Public Use
  Company Number: ES-ROCHE-2791779

PATIENT
  Age: 58 Year
  Sex: Female

DRUGS (148)
  1. APREPITANT. [Concomitant]
     Active Substance: APREPITANT
     Route: 048
     Dates: start: 20201201, end: 20201201
  2. DEXAMETHASONE. [Concomitant]
     Active Substance: DEXAMETHASONE
     Route: 042
     Dates: start: 20201001, end: 20201001
  3. DEXAMETHASONE. [Concomitant]
     Active Substance: DEXAMETHASONE
     Route: 042
     Dates: start: 20201202, end: 20201202
  4. DEXAMETHASONE. [Concomitant]
     Active Substance: DEXAMETHASONE
     Route: 042
     Dates: start: 20201203, end: 20201203
  5. RANITIDINE. [Concomitant]
     Active Substance: RANITIDINE
     Route: 042
     Dates: start: 20200930, end: 20200930
  6. RANITIDINE. [Concomitant]
     Active Substance: RANITIDINE
     Route: 042
     Dates: start: 20201113, end: 20201113
  7. ONDANSETRON [Concomitant]
     Active Substance: ONDANSETRON
     Route: 042
     Dates: start: 20201021, end: 20201021
  8. ONDANSETRON [Concomitant]
     Active Substance: ONDANSETRON
     Route: 042
     Dates: start: 20201111, end: 20201111
  9. ONDANSETRON [Concomitant]
     Active Substance: ONDANSETRON
     Route: 042
     Dates: start: 20201112, end: 20201112
  10. ONDANSETRON [Concomitant]
     Active Substance: ONDANSETRON
     Route: 048
     Dates: start: 20210301, end: 20210308
  11. OMEPRAZOLE. [Concomitant]
     Active Substance: OMEPRAZOLE
     Route: 042
     Dates: start: 20210221, end: 20210227
  12. OMEPRAZOLE. [Concomitant]
     Active Substance: OMEPRAZOLE
     Route: 048
     Dates: start: 20210228, end: 20210308
  13. OMEPRAZOLE. [Concomitant]
     Active Substance: OMEPRAZOLE
     Route: 042
     Dates: start: 20210301, end: 20210301
  14. OMEPRAZOLE. [Concomitant]
     Active Substance: OMEPRAZOLE
     Route: 042
     Dates: start: 20210309, end: 20210401
  15. BISACODYL. [Concomitant]
     Active Substance: BISACODYL
     Route: 048
     Dates: start: 20210208, end: 20210220
  16. DIAZEPAM. [Concomitant]
     Active Substance: DIAZEPAM
     Route: 042
     Dates: start: 20210309, end: 20210315
  17. DIAZEPAM. [Concomitant]
     Active Substance: DIAZEPAM
     Route: 042
     Dates: start: 20210316, end: 20210316
  18. CLAVULANIC ACID [Concomitant]
     Active Substance: CLAVULANIC ACID
     Route: 042
     Dates: start: 20210226, end: 20210227
  19. ALPRAZOLAM. [Concomitant]
     Active Substance: ALPRAZOLAM
     Route: 048
     Dates: start: 20210319, end: 20210330
  20. MORPHINE [Concomitant]
     Active Substance: MORPHINE
     Dosage: AS NEEDED
     Route: 058
     Dates: start: 20210223, end: 20210226
  21. APREPITANT. [Concomitant]
     Active Substance: APREPITANT
     Route: 048
     Dates: start: 20200930, end: 20200930
  22. APREPITANT. [Concomitant]
     Active Substance: APREPITANT
     Route: 048
     Dates: start: 20201021, end: 20201021
  23. APREPITANT. [Concomitant]
     Active Substance: APREPITANT
     Route: 048
     Dates: start: 20201113, end: 20201113
  24. DEXAMETHASONE. [Concomitant]
     Active Substance: DEXAMETHASONE
     Route: 042
     Dates: start: 20200930, end: 20200930
  25. DEXAMETHASONE. [Concomitant]
     Active Substance: DEXAMETHASONE
     Route: 042
     Dates: start: 20201223, end: 20201223
  26. RANITIDINE. [Concomitant]
     Active Substance: RANITIDINE
     Route: 042
     Dates: start: 20201201, end: 20201201
  27. OMEPRAZOLE. [Concomitant]
     Active Substance: OMEPRAZOLE
     Route: 048
     Dates: start: 20210402, end: 20210404
  28. METAMIZOLE [Concomitant]
     Active Substance: METAMIZOLE
     Dosage: AS NEEDED
     Route: 048
     Dates: start: 20210228, end: 20210308
  29. LORAZEPAM. [Concomitant]
     Active Substance: LORAZEPAM
     Route: 042
     Dates: start: 20210317, end: 20210319
  30. IBUPROFEN. [Concomitant]
     Active Substance: IBUPROFEN
     Route: 048
     Dates: start: 20210226, end: 20210308
  31. DIAZEPAM. [Concomitant]
     Active Substance: DIAZEPAM
     Route: 048
     Dates: start: 20210224
  32. AMOXICILLIN. [Concomitant]
     Active Substance: AMOXICILLIN
     Route: 048
     Dates: start: 202011, end: 202011
  33. ALBUMIN [Concomitant]
     Active Substance: ALBUMIN HUMAN
     Route: 042
     Dates: start: 20210225, end: 20210227
  34. APREPITANT. [Concomitant]
     Active Substance: APREPITANT
     Route: 048
     Dates: start: 20201221, end: 20201221
  35. DEXAMETHASONE. [Concomitant]
     Active Substance: DEXAMETHASONE
     Route: 042
     Dates: start: 20210112, end: 20210112
  36. RANITIDINE. [Concomitant]
     Active Substance: RANITIDINE
     Route: 042
     Dates: start: 20201020, end: 20201020
  37. ONDANSETRON [Concomitant]
     Active Substance: ONDANSETRON
     Route: 042
     Dates: start: 20201020, end: 20201020
  38. ONDANSETRON [Concomitant]
     Active Substance: ONDANSETRON
     Route: 042
     Dates: start: 20201201, end: 20201201
  39. SODIUM DIHYDROGEN PHOSPHATE [Concomitant]
     Active Substance: SODIUM PHOSPHATE
     Dosage: PER RECTUM
     Dates: start: 20210215, end: 20210215
  40. LACTULOSE. [Concomitant]
     Active Substance: LACTULOSE
     Route: 048
     Dates: start: 20210215
  41. PARACETAMOL [Concomitant]
     Active Substance: ACETAMINOPHEN
     Route: 042
     Dates: start: 20210301, end: 20210301
  42. POTASSIUM [Concomitant]
     Active Substance: POTASSIUM
     Route: 048
  43. POTASSIUM [Concomitant]
     Active Substance: POTASSIUM
     Route: 048
     Dates: start: 20210228, end: 20210308
  44. POTASSIUM [Concomitant]
     Active Substance: POTASSIUM
     Route: 048
     Dates: start: 20210208, end: 20210220
  45. METOCLOPRAMIDE. [Concomitant]
     Active Substance: METOCLOPRAMIDE
     Route: 042
     Dates: start: 20210309, end: 20210404
  46. LORAZEPAM. [Concomitant]
     Active Substance: LORAZEPAM
     Dosage: AS NEEDED
     Route: 048
     Dates: start: 20210208, end: 20210308
  47. DEXKETOPROFEN [Concomitant]
     Active Substance: DEXKETOPROFEN
     Route: 042
     Dates: start: 20210224, end: 20210226
  48. AMOXICILLIN. [Concomitant]
     Active Substance: AMOXICILLIN
     Route: 042
     Dates: start: 20210226, end: 20210227
  49. ASCORBIC ACID. [Concomitant]
     Active Substance: ASCORBIC ACID
     Route: 048
     Dates: start: 20210228, end: 20210308
  50. PREDNISONE. [Concomitant]
     Active Substance: PREDNISONE
     Route: 048
     Dates: start: 20210303
  51. MIRTAZAPINE. [Concomitant]
     Active Substance: MIRTAZAPINE
     Route: 048
     Dates: start: 20210330, end: 20210404
  52. CARBOPLATIN. [Suspect]
     Active Substance: CARBOPLATIN
     Indication: SMALL CELL LUNG CANCER
     Dosage: AUC OF 5 MG/ML/MIN?DATE OF LAST DOSE RECEIVED: 11/JAN/2021 AT 15:00, 470 MG
     Route: 042
     Dates: start: 20200930
  53. ETOPOSIDE. [Suspect]
     Active Substance: ETOPOSIDE
     Indication: SMALL CELL LUNG CANCER
     Dosage: DATE OF LAST DOSE RECEIVED: 13/JAN/2021 AT 09:46, 140 MG
     Route: 042
     Dates: start: 20200930
  54. MORPHINE [Concomitant]
     Active Substance: MORPHINE
     Route: 042
     Dates: start: 20210405, end: 20210406
  55. APREPITANT. [Concomitant]
     Active Substance: APREPITANT
     Route: 048
     Dates: start: 20201222, end: 20201222
  56. APREPITANT. [Concomitant]
     Active Substance: APREPITANT
     Route: 048
     Dates: start: 20210111, end: 20210111
  57. APREPITANT. [Concomitant]
     Active Substance: APREPITANT
     Route: 048
     Dates: start: 20210112, end: 20210112
  58. RANITIDINE. [Concomitant]
     Active Substance: RANITIDINE
     Route: 042
     Dates: start: 20210113, end: 20210113
  59. ONDANSETRON [Concomitant]
     Active Substance: ONDANSETRON
     Route: 042
     Dates: start: 20201113, end: 20201113
  60. ONDANSETRON [Concomitant]
     Active Substance: ONDANSETRON
     Route: 048
     Dates: start: 20210301
  61. ONDANSETRON [Concomitant]
     Active Substance: ONDANSETRON
     Route: 042
     Dates: start: 20201202, end: 20201202
  62. ONDANSETRON [Concomitant]
     Active Substance: ONDANSETRON
     Route: 042
     Dates: start: 20201203, end: 20201203
  63. ONDANSETRON [Concomitant]
     Active Substance: ONDANSETRON
     Route: 042
     Dates: start: 20201222, end: 20201222
  64. ONDANSETRON [Concomitant]
     Active Substance: ONDANSETRON
     Route: 042
     Dates: start: 20201223, end: 20201223
  65. OMEPRAZOLE. [Concomitant]
     Active Substance: OMEPRAZOLE
     Route: 042
     Dates: start: 20210208, end: 20210220
  66. SODIUM DIHYDROGEN PHOSPHATE [Concomitant]
     Active Substance: SODIUM PHOSPHATE
     Dosage: PER RECTUM
     Dates: start: 20210301, end: 20210301
  67. BISACODYL. [Concomitant]
     Active Substance: BISACODYL
     Route: 048
     Dates: start: 20210301, end: 20210308
  68. PARACETAMOL [Concomitant]
     Active Substance: ACETAMINOPHEN
     Route: 048
     Dates: start: 20210208, end: 20210220
  69. FUROSEMIDE. [Concomitant]
     Active Substance: FUROSEMIDE
     Route: 042
     Dates: start: 20210325, end: 20210325
  70. DIAZEPAM. [Concomitant]
     Active Substance: DIAZEPAM
     Route: 042
     Dates: start: 20210330, end: 20210405
  71. ATEZOLIZUMAB. [Suspect]
     Active Substance: ATEZOLIZUMAB
     Indication: SMALL CELL LUNG CANCER
     Dosage: DATE OF LAST DOSE RECEIVED: 02/FEB/2021 AT 13:48
     Route: 041
     Dates: start: 20200930
  72. APREPITANT. [Concomitant]
     Active Substance: APREPITANT
     Route: 048
     Dates: start: 20201002, end: 20201002
  73. APREPITANT. [Concomitant]
     Active Substance: APREPITANT
     Route: 048
     Dates: start: 20201022, end: 20201022
  74. APREPITANT. [Concomitant]
     Active Substance: APREPITANT
     Route: 048
     Dates: start: 20201111, end: 20201111
  75. DEXAMETHASONE. [Concomitant]
     Active Substance: DEXAMETHASONE
     Route: 042
     Dates: start: 20201020, end: 20201020
  76. DEXAMETHASONE. [Concomitant]
     Active Substance: DEXAMETHASONE
     Route: 042
     Dates: start: 20201111, end: 20201111
  77. DEXAMETHASONE. [Concomitant]
     Active Substance: DEXAMETHASONE
     Route: 042
     Dates: start: 20201113, end: 20201113
  78. DEXAMETHASONE. [Concomitant]
     Active Substance: DEXAMETHASONE
     Route: 042
     Dates: start: 20210224, end: 20210226
  79. RANITIDINE. [Concomitant]
     Active Substance: RANITIDINE
     Route: 042
     Dates: start: 20210111, end: 20210111
  80. ONDANSETRON [Concomitant]
     Active Substance: ONDANSETRON
     Route: 042
     Dates: start: 20201002, end: 20201002
  81. ONDANSETRON [Concomitant]
     Active Substance: ONDANSETRON
     Route: 042
     Dates: start: 20201022, end: 20201022
  82. ONDANSETRON [Concomitant]
     Active Substance: ONDANSETRON
     Route: 042
     Dates: start: 20210208, end: 20210208
  83. ONDANSETRON [Concomitant]
     Active Substance: ONDANSETRON
     Route: 042
     Dates: start: 20210112, end: 20210112
  84. PARACETAMOL [Concomitant]
     Active Substance: ACETAMINOPHEN
     Route: 042
     Dates: start: 20210227
  85. BUTYLSCOPOLAMINE [Concomitant]
     Active Substance: BUTYLSCOPOLAMINE
     Route: 042
     Dates: start: 20210222, end: 20210222
  86. METAMIZOLE [Concomitant]
     Active Substance: METAMIZOLE
     Route: 042
     Dates: start: 20210222, end: 20210223
  87. METAMIZOLE [Concomitant]
     Active Substance: METAMIZOLE
     Route: 042
     Dates: start: 20210227, end: 20210227
  88. FUROSEMIDE. [Concomitant]
     Active Substance: FUROSEMIDE
     Route: 048
     Dates: start: 20210226, end: 20210227
  89. APREPITANT. [Concomitant]
     Active Substance: APREPITANT
     Route: 048
     Dates: start: 20201112, end: 20201112
  90. APREPITANT. [Concomitant]
     Active Substance: APREPITANT
     Route: 048
     Dates: start: 20201202, end: 20201202
  91. DEXAMETHASONE. [Concomitant]
     Active Substance: DEXAMETHASONE
     Route: 042
     Dates: start: 20201022, end: 20201022
  92. DEXAMETHASONE. [Concomitant]
     Active Substance: DEXAMETHASONE
     Route: 042
     Dates: start: 20201112, end: 20201112
  93. DEXAMETHASONE. [Concomitant]
     Active Substance: DEXAMETHASONE
     Route: 042
     Dates: start: 20201221, end: 20201221
  94. DEXAMETHASONE. [Concomitant]
     Active Substance: DEXAMETHASONE
     Route: 042
     Dates: start: 20210111, end: 20210111
  95. RANITIDINE. [Concomitant]
     Active Substance: RANITIDINE
     Route: 042
     Dates: start: 20201001, end: 20201001
  96. RANITIDINE. [Concomitant]
     Active Substance: RANITIDINE
     Route: 042
     Dates: start: 20201111, end: 20201111
  97. RANITIDINE. [Concomitant]
     Active Substance: RANITIDINE
     Route: 042
     Dates: start: 20201112, end: 20201112
  98. RANITIDINE. [Concomitant]
     Active Substance: RANITIDINE
     Route: 042
     Dates: start: 20201202, end: 20201202
  99. RANITIDINE. [Concomitant]
     Active Substance: RANITIDINE
     Route: 042
     Dates: start: 20201203, end: 20201203
  100. ONDANSETRON [Concomitant]
     Active Substance: ONDANSETRON
     Route: 042
     Dates: start: 20200930, end: 20200930
  101. ONDANSETRON [Concomitant]
     Active Substance: ONDANSETRON
     Route: 048
     Dates: start: 20210208, end: 20210220
  102. ONDANSETRON [Concomitant]
     Active Substance: ONDANSETRON
     Route: 042
     Dates: start: 20210311, end: 20210404
  103. OMEPRAZOLE. [Concomitant]
     Active Substance: OMEPRAZOLE
     Route: 042
     Dates: start: 20210208, end: 20210208
  104. SODIUM DIHYDROGEN PHOSPHATE [Concomitant]
     Active Substance: SODIUM PHOSPHATE
     Dosage: PER RECTUM
     Dates: start: 20210221, end: 20210221
  105. ENOXAPARIN [Concomitant]
     Active Substance: ENOXAPARIN
     Route: 058
     Dates: start: 20210221, end: 20210226
  106. ENOXAPARIN [Concomitant]
     Active Substance: ENOXAPARIN
     Route: 058
     Dates: start: 20210309, end: 20210404
  107. TORASEMIDE [Concomitant]
     Active Substance: TORSEMIDE
     Indication: HYPERTENSION
     Dates: start: 20200925, end: 20210208
  108. METHYLPREDNISOLONE. [Concomitant]
     Active Substance: METHYLPREDNISOLONE
     Route: 042
     Dates: start: 20210221, end: 20210224
  109. POLARAMINE [Concomitant]
     Active Substance: DEXCHLORPHENIRAMINE MALEATE
     Indication: RASH
     Route: 048
     Dates: start: 20200925, end: 20201118
  110. APREPITANT. [Concomitant]
     Active Substance: APREPITANT
     Route: 048
     Dates: start: 20201203, end: 20201203
  111. DEXAMETHASONE. [Concomitant]
     Active Substance: DEXAMETHASONE
     Route: 042
     Dates: start: 20201002, end: 20201002
  112. DEXAMETHASONE. [Concomitant]
     Active Substance: DEXAMETHASONE
     Route: 042
     Dates: start: 20201201, end: 20201201
  113. DEXAMETHASONE. [Concomitant]
     Active Substance: DEXAMETHASONE
     Route: 042
     Dates: start: 20201222, end: 20201222
  114. RANITIDINE. [Concomitant]
     Active Substance: RANITIDINE
     Route: 042
     Dates: start: 20201221, end: 20201221
  115. RANITIDINE. [Concomitant]
     Active Substance: RANITIDINE
     Route: 042
     Dates: start: 20201223, end: 20201223
  116. RANITIDINE. [Concomitant]
     Active Substance: RANITIDINE
     Route: 042
     Dates: start: 20210112, end: 20210112
  117. ONDANSETRON [Concomitant]
     Active Substance: ONDANSETRON
     Route: 042
     Dates: start: 20201001, end: 20201001
  118. ONDANSETRON [Concomitant]
     Active Substance: ONDANSETRON
     Route: 042
     Dates: start: 20210111, end: 20210111
  119. ONDANSETRON [Concomitant]
     Active Substance: ONDANSETRON
     Dosage: NEXT DOSE: 08/FEB/2021
     Route: 042
     Dates: start: 20210113, end: 20210113
  120. ONDANSETRON [Concomitant]
     Active Substance: ONDANSETRON
     Route: 048
     Dates: start: 20210208, end: 20210220
  121. DOMPERIDONE [Concomitant]
     Active Substance: DOMPERIDONE
     Route: 048
     Dates: start: 20210208, end: 20210220
  122. PARACETAMOL [Concomitant]
     Active Substance: ACETAMINOPHEN
     Route: 042
     Dates: start: 20210221, end: 20210227
  123. PARACETAMOL [Concomitant]
     Active Substance: ACETAMINOPHEN
     Route: 048
     Dates: start: 20210228, end: 20210308
  124. METOCLOPRAMIDE. [Concomitant]
     Active Substance: METOCLOPRAMIDE
     Route: 042
     Dates: start: 20210222, end: 20210226
  125. METOCLOPRAMIDE. [Concomitant]
     Active Substance: METOCLOPRAMIDE
     Route: 048
     Dates: start: 20210227, end: 20210308
  126. CLAVULANIC ACID [Concomitant]
     Active Substance: CLAVULANIC ACID
     Route: 048
     Dates: start: 20210228, end: 20210305
  127. MORPHINE [Concomitant]
     Active Substance: MORPHINE
     Indication: BACK PAIN
     Route: 048
     Dates: start: 20200925, end: 20210208
  128. MORPHINE [Concomitant]
     Active Substance: MORPHINE
     Route: 048
     Dates: start: 20200925, end: 20210220
  129. METHYLPREDNISOLONE. [Concomitant]
     Active Substance: METHYLPREDNISOLONE
     Indication: RASH
     Route: 061
     Dates: start: 20210217
  130. APREPITANT. [Concomitant]
     Active Substance: APREPITANT
     Route: 048
     Dates: start: 20201001, end: 20201001
  131. APREPITANT. [Concomitant]
     Active Substance: APREPITANT
     Route: 048
     Dates: start: 20201020, end: 20201020
  132. APREPITANT. [Concomitant]
     Active Substance: APREPITANT
     Route: 048
     Dates: start: 20201223, end: 20201223
  133. APREPITANT. [Concomitant]
     Active Substance: APREPITANT
     Route: 048
     Dates: start: 20210113, end: 20210113
  134. DEXAMETHASONE. [Concomitant]
     Active Substance: DEXAMETHASONE
     Route: 042
     Dates: start: 20201021, end: 20201021
  135. DEXAMETHASONE. [Concomitant]
     Active Substance: DEXAMETHASONE
     Route: 042
     Dates: start: 20210113, end: 20210113
  136. RANITIDINE. [Concomitant]
     Active Substance: RANITIDINE
     Route: 042
     Dates: start: 20201002, end: 20201002
  137. RANITIDINE. [Concomitant]
     Active Substance: RANITIDINE
     Route: 042
     Dates: start: 20201021, end: 20201021
  138. RANITIDINE. [Concomitant]
     Active Substance: RANITIDINE
     Route: 042
     Dates: start: 20201022, end: 20201022
  139. RANITIDINE. [Concomitant]
     Active Substance: RANITIDINE
     Route: 042
     Dates: start: 20201222, end: 20201222
  140. ONDANSETRON [Concomitant]
     Active Substance: ONDANSETRON
     Route: 042
     Dates: start: 20201221, end: 20201221
  141. SODIUM DIHYDROGEN PHOSPHATE [Concomitant]
     Active Substance: SODIUM PHOSPHATE
     Dosage: PER RECTUM
     Dates: start: 20210224, end: 20210224
  142. METOCLOPRAMIDE. [Concomitant]
     Active Substance: METOCLOPRAMIDE
     Dosage: 1 MG/ML
     Route: 048
     Dates: start: 20201117, end: 20210221
  143. PIPERACILLIN AND TAZOBACTAM [Concomitant]
     Active Substance: PIPERACILLIN SODIUM\TAZOBACTAM SODIUM
     Route: 042
     Dates: start: 20210224, end: 20210226
  144. AMOXICILLIN. [Concomitant]
     Active Substance: AMOXICILLIN
     Route: 048
     Dates: start: 20210228, end: 20210305
  145. PREDNISONE. [Concomitant]
     Active Substance: PREDNISONE
     Route: 048
     Dates: start: 20210301
  146. PREDNISONE. [Concomitant]
     Active Substance: PREDNISONE
     Route: 048
     Dates: start: 20210303, end: 20210308
  147. SIMETHICONE (DIMETHICONE) [Concomitant]
     Active Substance: DIMETHICONE
     Route: 048
     Dates: start: 20210301, end: 20210308
  148. TAZOBACTAM [Concomitant]
     Active Substance: TAZOBACTAM
     Route: 042
     Dates: start: 20210312, end: 20210321

REACTIONS (1)
  - Subileus [Fatal]

NARRATIVE: CASE EVENT DATE: 20210309
